FAERS Safety Report 16447138 (Version 2)
Quarter: 2019Q2

REPORT INFORMATION
  Report Type: Report from Study
  Country: BE (occurrence: BE)
  Receive Date: 20190618
  Receipt Date: 20190626
  Transmission Date: 20190711
  Serious: Yes (Life-Threatening, Hospitalization)
  Sender: FDA-Public Use
  Company Number: PHHO2019BE004958

PATIENT
  Age: 44 Year
  Sex: Male
  Weight: 95.6 kg

DRUGS (3)
  1. MYCOPHENOLATE MOFETIL. [Suspect]
     Active Substance: MYCOPHENOLATE MOFETIL
     Dosage: 1 G, BID
     Route: 048
     Dates: start: 20190416, end: 20190508
  2. NEUROBION ( CYANOCOBALAMINE,PYRIDOXINE HCL,THIAMINE HCL) [Concomitant]
     Dates: start: 20190425
  3. CFZ533 [Suspect]
     Active Substance: ISCALIMAB
     Dosage: 4 ML, Q2W
     Route: 058
     Dates: start: 20190416, end: 20190429

REACTIONS (2)
  - Graft loss [Recovered/Resolved with Sequelae]
  - Renal vein thrombosis [Recovered/Resolved with Sequelae]

NARRATIVE: CASE EVENT DATE: 20190508
